FAERS Safety Report 23274012 (Version 1)
Quarter: 2023Q4

REPORT INFORMATION
  Report Type: Spontaneous
  Country: US (occurrence: US)
  Receive Date: 20231208
  Receipt Date: 20231208
  Transmission Date: 20240109
  Serious: No
  Sender: FDA-Public Use
  Company Number: US-SANOFI-01860645

PATIENT
  Sex: Female

DRUGS (1)
  1. DUPIXENT [Suspect]
     Active Substance: DUPILUMAB
     Indication: Product used for unknown indication
     Dosage: UNK

REACTIONS (4)
  - Injection site warmth [Unknown]
  - Injection site urticaria [Unknown]
  - Injection site pruritus [Unknown]
  - Injection site pain [Unknown]
